FAERS Safety Report 19455026 (Version 1)
Quarter: 2021Q2

REPORT INFORMATION
  Report Type: Report from Study
  Country: MX (occurrence: MX)
  Receive Date: 20210623
  Receipt Date: 20210623
  Transmission Date: 20210717
  Serious: Yes (Other)
  Sender: FDA-Public Use
  Company Number: PHHY2019MX040434

PATIENT
  Sex: Female
  Weight: 70 kg

DRUGS (5)
  1. ENTRESTO [Suspect]
     Active Substance: SACUBITRIL\VALSARTAN
     Indication: INFARCTION
     Dosage: 1 DF, Q12H (EVERY 12 HOURS)
     Route: 048
     Dates: start: 2016
  2. ENTRESTO [Interacting]
     Active Substance: SACUBITRIL\VALSARTAN
     Dosage: 1 DF, BID
     Route: 048
     Dates: start: 201801
  3. ATORVASTATIN [Interacting]
     Active Substance: ATORVASTATIN
     Indication: INFARCTION
     Dosage: 1 DF, QD
     Route: 048
     Dates: start: 2018
  4. OMEPRAZOL [Concomitant]
     Active Substance: OMEPRAZOLE
     Indication: ADVERSE EVENT
     Dosage: 1 DF, QD
     Route: 048
     Dates: start: 2018
  5. DIOVAN [Interacting]
     Active Substance: VALSARTAN
     Indication: INFARCTION
     Dosage: 1 DF, BID
     Route: 048
     Dates: start: 2018

REACTIONS (6)
  - Gait disturbance [Unknown]
  - Arterial occlusive disease [Unknown]
  - Fatigue [Unknown]
  - Product use in unapproved indication [Unknown]
  - Weight decreased [Unknown]
  - Infarction [Unknown]

NARRATIVE: CASE EVENT DATE: 2018
